FAERS Safety Report 9841940 (Version 1)
Quarter: 2014Q1

REPORT INFORMATION
  Report Type: Spontaneous
  Country: US (occurrence: US)
  Receive Date: 20140124
  Receipt Date: 20140124
  Transmission Date: 20141002
  Serious: Yes (Other)
  Sender: FDA-Public Use
  Company Number: US-BAYER-2014-010953

PATIENT
  Age: 50 Year
  Sex: Female

DRUGS (5)
  1. BAYER GENUINE ASPIRIN ORIGINAL STRENGTH [Suspect]
     Route: 048
  2. ALEVE TABLET [Suspect]
     Indication: ARTHRITIS
     Dosage: 1 DF, PRN
     Route: 048
  3. ALEVE TABLET [Suspect]
     Indication: HEADACHE
  4. ALEVE TABLET [Suspect]
     Indication: BACK PAIN
  5. TYLENOL [PARACETAMOL] [Concomitant]

REACTIONS (8)
  - Haematochezia [Recovered/Resolved]
  - Dyspepsia [None]
  - Abdominal discomfort [None]
  - Flank pain [Not Recovered/Not Resolved]
  - Urine output decreased [Not Recovered/Not Resolved]
  - Abdominal distension [Not Recovered/Not Resolved]
  - Incorrect drug administration duration [None]
  - Expired drug administered [None]
